FAERS Safety Report 12406454 (Version 3)
Quarter: 2016Q3

REPORT INFORMATION
  Report Type: Report from Study
  Country: US (occurrence: US)
  Receive Date: 20160526
  Receipt Date: 20160711
  Transmission Date: 20161109
  Serious: Yes (Hospitalization, Other)
  Sender: FDA-Public Use
  Company Number: US-JNJFOC-20160523910

PATIENT
  Age: 71 Year
  Sex: Female

DRUGS (17)
  1. ALLOPURINOL. [Concomitant]
     Active Substance: ALLOPURINOL
     Route: 048
  2. MENATETRENONE [Concomitant]
     Active Substance: MENATETRENONE
     Dosage: ONE TABLET
     Route: 048
  3. PROZAC [Concomitant]
     Active Substance: FLUOXETINE HYDROCHLORIDE
     Route: 048
  4. ACETAMINOPHEN. [Concomitant]
     Active Substance: ACETAMINOPHEN
     Indication: BACK PAIN
     Dosage: 2 TABLETS
     Route: 048
  5. VITAMIN D3 [Concomitant]
     Active Substance: CHOLECALCIFEROL
     Dosage: 2 TABLETS
     Route: 048
  6. FUROSEMIDE. [Concomitant]
     Active Substance: FUROSEMIDE
     Dosage: WITH BREAKFAT
     Route: 048
  7. IMBRUVICA [Suspect]
     Active Substance: IBRUTINIB
     Indication: CHRONIC LYMPHOCYTIC LEUKAEMIA
     Dosage: 420 MG, UNK
     Dates: start: 20150930, end: 2016
  8. TRAZODONE [Concomitant]
     Active Substance: TRAZODONE HYDROCHLORIDE
     Dosage: QHS
     Route: 048
  9. LOSARTAN. [Concomitant]
     Active Substance: LOSARTAN
     Route: 048
  10. FISH OIL [Concomitant]
     Active Substance: FISH OIL
     Dosage: 3 CAPSULES
     Route: 048
  11. DEEP SEA PREMIUM SALINE [Concomitant]
     Indication: NASAL DRYNESS
     Dosage: PRN, ONE SPRAY
     Route: 045
  12. ATENOLOL. [Concomitant]
     Active Substance: ATENOLOL
     Route: 048
     Dates: end: 201605
  13. IMBRUVICA [Suspect]
     Active Substance: IBRUTINIB
     Indication: CHRONIC LYMPHOCYTIC LEUKAEMIA
     Dates: start: 2016
  14. FUROSEMIDE. [Concomitant]
     Active Substance: FUROSEMIDE
     Dosage: EVERY EVENING
     Route: 048
  15. VITAMIN-A [Concomitant]
     Active Substance: VITAMIN A
     Dosage: ONE TABLET
     Route: 048
  16. TEARS NATURALE FREE [Concomitant]
     Active Substance: DEXTRAN 70\HYPROMELLOSE 2910 (4000 MPA.S)
     Dosage: 1 GTT, PRN, BOTH EYES
     Route: 031
  17. VITAMIN B COMPLEX [Concomitant]
     Active Substance: CYANOCOBALAMIN\DEXPANTHENOL\NIACINAMIDE\PYRIDOXINE HYDROCHLORIDE\RIBOFLAVIN 5^-PHOSPHATE SODIUM\THIAMINE HYDROCHLORIDE\VITAMIN B COMPLEX
     Dosage: ONE TABLET
     Route: 048

REACTIONS (12)
  - Dilatation atrial [Not Recovered/Not Resolved]
  - Hypoxia [Not Recovered/Not Resolved]
  - Cellulitis [Recovering/Resolving]
  - Atrial fibrillation [Recovered/Resolved]
  - Hypokalaemia [Recovered/Resolved]
  - Peripheral swelling [Not Recovered/Not Resolved]
  - Cardiomegaly [Not Recovered/Not Resolved]
  - Acute kidney injury [Recovered/Resolved]
  - Conjunctivitis [Not Recovered/Not Resolved]
  - Streptococcal urinary tract infection [Not Recovered/Not Resolved]
  - Thrombocytopenia [Not Recovered/Not Resolved]
  - Contusion [Not Recovered/Not Resolved]

NARRATIVE: CASE EVENT DATE: 2016
